FAERS Safety Report 16053888 (Version 2)
Quarter: 2023Q2

REPORT INFORMATION
  Report Type: Spontaneous
  Country: JP (occurrence: JP)
  Receive Date: 20190308
  Receipt Date: 20230412
  Transmission Date: 20230722
  Serious: Yes (Other)
  Sender: FDA-Public Use
  Company Number: JP-PFIZER INC-2019100047

PATIENT
  Age: 58 Year
  Sex: Female

DRUGS (2)
  1. PALBOCICLIB [Suspect]
     Active Substance: PALBOCICLIB
     Indication: Breast cancer metastatic
     Dosage: 100 MG, CYCLIC (100 MG/DAY, ORALLY, 3 WEEKS, FOLLOWED BY 1 WEEK OFF)
     Route: 048
     Dates: start: 201804
  2. FULVESTRANT [Suspect]
     Active Substance: FULVESTRANT
     Indication: Breast cancer metastatic
     Dosage: 500 MG, CYCLIC (500 MG, INTRAMUSCULARLY, EVERY 14 DAYS FOR THE FIRST THREE INJECTIONS AND THEN EVERY
     Route: 030
     Dates: start: 201804

REACTIONS (1)
  - Gastroenteritis radiation [Recovering/Resolving]
